FAERS Safety Report 24918189 (Version 1)
Quarter: 2025Q1

REPORT INFORMATION
  Report Type: Report from Study
  Country: US (occurrence: US)
  Receive Date: 20250203
  Receipt Date: 20250203
  Transmission Date: 20250408
  Serious: No
  Sender: INCYTE
  Company Number: US-EVENT-001171

PATIENT

DRUGS (1)
  1. JAKAFI [Suspect]
     Active Substance: RUXOLITINIB
     Indication: Chronic graft versus host disease
     Dosage: 5 MILLIGRAM, BID
     Route: 065
     Dates: start: 202311

REACTIONS (6)
  - Onychoclasis [Unknown]
  - Onychalgia [Unknown]
  - Nail growth abnormal [Unknown]
  - Decreased immune responsiveness [Unknown]
  - Nasopharyngitis [Unknown]
  - Influenza [Unknown]
